FAERS Safety Report 8144034-2 (Version None)
Quarter: 2012Q1

REPORT INFORMATION
  Report Type: 
  Country: None (occurrence: None)
  Receive Date: 20120217
  Receipt Date: 20120217
  Transmission Date: 20120608
  Serious: Yes (Hospitalization)
  Sender: FDA-Public Use
  Company Number: None

PATIENT
  Sex: Male
  Weight: 136.07 kg

DRUGS (1)
  1. FENOFIBRATE [Suspect]
     Indication: BLOOD CHOLESTEROL INCREASED
     Dates: start: 20060515, end: 20110526

REACTIONS (6)
  - LOSS OF CONTROL OF LEGS [None]
  - BLOOD CHOLESTEROL INCREASED [None]
  - TREATMENT NONCOMPLIANCE [None]
  - MUSCULAR WEAKNESS [None]
  - HEADACHE [None]
  - GAIT DISTURBANCE [None]
